FAERS Safety Report 6443675-8 (Version None)
Quarter: 2009Q4

REPORT INFORMATION
  Report Type: 
  Country: None (occurrence: None)
  Receive Date: 20091117
  Receipt Date: 20091113
  Transmission Date: 20100525
  Serious: Yes (Death, Other)
  Sender: FDA-Public Use
  Company Number: PHHY2009GB48817

PATIENT
  Sex: Male

DRUGS (5)
  1. CLOZARIL [Suspect]
     Indication: SCHIZOPHRENIA
     Dosage: UNK
     Dates: start: 20010226
  2. DIAZEPAM [Concomitant]
     Dosage: 8 MG, UNK
     Route: 048
     Dates: start: 20090629, end: 20090713
  3. ARIPIPRAZOLE [Concomitant]
     Dosage: 10 MG, UNK
  4. VALPROATE SODIUM [Concomitant]
     Dosage: 400 MG, BID
  5. MIRTAZAPINE [Concomitant]
     Dosage: 30 MG, UNK

REACTIONS (8)
  - AGITATION [None]
  - ANXIETY [None]
  - BLOOD PRESSURE DECREASED [None]
  - DEATH [None]
  - HAEMOGLOBIN DECREASED [None]
  - PLATELET COUNT INCREASED [None]
  - SMALL CELL LUNG CANCER STAGE UNSPECIFIED [None]
  - WHITE BLOOD CELL COUNT INCREASED [None]
